FAERS Safety Report 7176971-X (Version None)
Quarter: 2010Q4

REPORT INFORMATION
  Report Type: 
  Country: None (occurrence: None)
  Receive Date: 20101220
  Receipt Date: 20101208
  Transmission Date: 20110411
  Serious: Yes (Hospitalization)
  Sender: FDA-Public Use
  Company Number: FR-GENZYME-THYR-1000435

PATIENT
  Age: 27 Year
  Sex: Male

DRUGS (1)
  1. THYROGEN [Suspect]
     Indication: DIAGNOSTIC PROCEDURE
     Dosage: UNK
     Dates: start: 20100412, end: 20100412

REACTIONS (2)
  - DYSPEPSIA [None]
  - PRESYNCOPE [None]
